FAERS Safety Report 13985482 (Version 5)
Quarter: 2018Q1

REPORT INFORMATION
  Report Type: Spontaneous
  Country: CA (occurrence: CA)
  Receive Date: 20170919
  Receipt Date: 20180223
  Transmission Date: 20180508
  Serious: Yes (Other)
  Sender: FDA-Public Use
  Company Number: CA-ROCHE-1991029

PATIENT
  Age: 53 Year
  Sex: Female
  Weight: 40.82 kg

DRUGS (5)
  1. CORTISONE [Concomitant]
     Active Substance: CORTISONE\HYDROCORTISONE
     Indication: PRODUCT USED FOR UNKNOWN INDICATION
     Route: 065
  2. XOLAIR [Suspect]
     Active Substance: OMALIZUMAB
     Indication: ASTHMA
     Route: 058
     Dates: start: 20110120
  3. XOLAIR [Suspect]
     Active Substance: OMALIZUMAB
     Indication: ASTHMA
     Route: 058
     Dates: start: 20170126
  4. XOLAIR [Suspect]
     Active Substance: OMALIZUMAB
     Route: 058
     Dates: start: 20170814
  5. XOLAIR [Suspect]
     Active Substance: OMALIZUMAB
     Route: 058
     Dates: start: 20171222

REACTIONS (29)
  - Haematochezia [Unknown]
  - Concomitant disease aggravated [Unknown]
  - Hyperaesthesia [Unknown]
  - Diarrhoea [Unknown]
  - Dyspnoea exertional [Unknown]
  - Rhinorrhoea [Unknown]
  - General physical health deterioration [Unknown]
  - Sleep disorder [Unknown]
  - Abdominal pain [Unknown]
  - Nausea [Unknown]
  - Nasal congestion [Unknown]
  - Irritable bowel syndrome [Unknown]
  - Nail growth abnormal [Unknown]
  - Hair growth abnormal [Unknown]
  - Oral discharge [Unknown]
  - Mobility decreased [Unknown]
  - Vomiting [Unknown]
  - Influenza [Unknown]
  - Myalgia [Unknown]
  - Headache [Recovered/Resolved]
  - Pyrexia [Recovered/Resolved]
  - Nasal discharge discolouration [Unknown]
  - Increased upper airway secretion [Unknown]
  - Thyroid disorder [Unknown]
  - Hyperthermia [Unknown]
  - Pollakiuria [Unknown]
  - Fatigue [Unknown]
  - Dyspnoea [Unknown]
  - Cough [Unknown]

NARRATIVE: CASE EVENT DATE: 201702
